FAERS Safety Report 14341354 (Version 2)
Quarter: 2018Q1

REPORT INFORMATION
  Report Type: Report from Study
  Country: DE (occurrence: DE)
  Receive Date: 20180102
  Receipt Date: 20180131
  Transmission Date: 20180509
  Serious: Yes (Hospitalization)
  Sender: FDA-Public Use
  Company Number: DE-TEVA-2017-DE-837447

PATIENT
  Sex: Male
  Weight: 21 kg

DRUGS (9)
  1. INDOMETACIN [Concomitant]
     Active Substance: INDOMETHACIN
     Indication: STILL^S DISEASE
     Dosage: 15 MILLIGRAM DAILY;
     Route: 048
     Dates: start: 20120703
  2. PREDNISON [Concomitant]
     Active Substance: PREDNISONE
  3. INDOMETACIN [Concomitant]
     Active Substance: INDOMETHACIN
     Route: 048
  4. IBUPROFEN. [Suspect]
     Active Substance: IBUPROFEN
     Indication: STILL^S DISEASE
     Route: 048
     Dates: start: 20161111
  5. PREDNISON [Concomitant]
     Active Substance: PREDNISONE
     Indication: STILL^S DISEASE
     Dosage: 5 MILLIGRAM DAILY;
     Route: 048
     Dates: start: 20151030
  6. METHOTREXATE. [Suspect]
     Active Substance: METHOTREXATE
     Indication: STILL^S DISEASE
     Route: 058
     Dates: start: 20150512, end: 20151106
  7. NAPROXEN. [Suspect]
     Active Substance: NAPROXEN
     Indication: STILL^S DISEASE
     Route: 048
     Dates: start: 20161110
  8. ROACTEMRA [Suspect]
     Active Substance: TOCILIZUMAB
     Indication: STILL^S DISEASE
     Route: 042
     Dates: start: 20151030, end: 20160114
  9. PREDNISON [Concomitant]
     Active Substance: PREDNISONE
     Dosage: 10 MILLIGRAM DAILY;
     Route: 048
     Dates: start: 20160125

REACTIONS (5)
  - Pneumonia [Recovered/Resolved]
  - Pneumonia [Not Recovered/Not Resolved]
  - Headache [Recovered/Resolved]
  - Intracranial pressure increased [Recovered/Resolved]
  - Pleural effusion [Recovering/Resolving]

NARRATIVE: CASE EVENT DATE: 20160124
